FAERS Safety Report 17487920 (Version 3)
Quarter: 2020Q1

REPORT INFORMATION
  Report Type: Spontaneous
  Country: US (occurrence: US)
  Receive Date: 20200303
  Receipt Date: 20200331
  Transmission Date: 20200409
  Serious: No
  Sender: FDA-Public Use
  Company Number: US-PFIZER INC-2020093106

PATIENT
  Age: 7 Year
  Sex: Male
  Weight: 22.5 kg

DRUGS (2)
  1. GENOTROPIN [Suspect]
     Active Substance: SOMATROPIN
     Indication: BODY HEIGHT BELOW NORMAL
     Dosage: 0.8 MG AND 0.9 MG ALTERNATE DAY
     Route: 058
     Dates: start: 201912
  2. GENOTROPIN [Suspect]
     Active Substance: SOMATROPIN
     Indication: SICKLE CELL ANAEMIA
     Dosage: 0.8 MG, DAILY
     Route: 058
     Dates: start: 20200102

REACTIONS (1)
  - Injection site pain [Not Recovered/Not Resolved]

NARRATIVE: CASE EVENT DATE: 202002
